FAERS Safety Report 12744579 (Version 1)
Quarter: 2016Q3

REPORT INFORMATION
  Report Type: Spontaneous
  Country: US (occurrence: US)
  Receive Date: 20160914
  Receipt Date: 20160914
  Transmission Date: 20161109
  Serious: No
  Sender: FDA-Public Use
  Company Number: US-JAZZ-2016-US-009495

PATIENT
  Sex: Female

DRUGS (44)
  1. XYREM [Suspect]
     Active Substance: SODIUM OXYBATE
     Dosage: 4.5 G, BID
     Route: 048
     Dates: start: 201208
  2. LORAZEPAM. [Concomitant]
     Active Substance: LORAZEPAM
  3. ANUSOL-HC [Concomitant]
  4. EUCERIN [Concomitant]
     Active Substance: ENSULIZOLE\EUCERIN\OCTINOXATE\OCTISALATE\TITANIUM DIOXIDE\ZINC OXIDE
  5. TOLNAFTATE. [Concomitant]
     Active Substance: TOLNAFTATE
  6. PROLIA [Concomitant]
     Active Substance: DENOSUMAB
  7. DUREZOL [Concomitant]
     Active Substance: DIFLUPREDNATE
  8. XYREM [Suspect]
     Active Substance: SODIUM OXYBATE
     Dosage: DOSE ADJUSTMENTS
     Route: 048
     Dates: start: 2011, end: 2011
  9. MICONAZOLE NITRATE. [Concomitant]
     Active Substance: MICONAZOLE NITRATE
  10. PROZAC [Concomitant]
     Active Substance: FLUOXETINE HYDROCHLORIDE
  11. SYSTANE (HYPROMELLOSE 2910 (4000 MPA.S)) [Concomitant]
     Active Substance: HYPROMELLOSE 2910 (4000 MPA.S)
  12. VITAMIN B COMPLEX [Concomitant]
     Active Substance: CYANOCOBALAMIN\DEXPANTHENOL\NIACINAMIDE\PYRIDOXINE HYDROCHLORIDE\RIBOFLAVIN 5^-PHOSPHATE SODIUM\THIAMINE HYDROCHLORIDE\VITAMIN B COMPLEX
  13. XYREM [Suspect]
     Active Substance: SODIUM OXYBATE
     Dosage: 4.5 G, BID
     Route: 048
     Dates: start: 2011, end: 2011
  14. VITAMIN D [Concomitant]
     Active Substance: CHOLECALCIFEROL
  15. VITAMIN D3 [Concomitant]
     Active Substance: CHOLECALCIFEROL
  16. XYLOCAINE [Concomitant]
     Active Substance: LIDOCAINE HYDROCHLORIDE
  17. XYREM [Suspect]
     Active Substance: SODIUM OXYBATE
     Indication: NARCOLEPSY
     Dosage: 2.25 G, BID
     Route: 048
     Dates: start: 201103, end: 2011
  18. VITAMIN B12 [Suspect]
     Active Substance: CYANOCOBALAMIN
     Indication: PRODUCT USED FOR UNKNOWN INDICATION
     Dosage: 500 ?G EVERY OTHER DAY
     Dates: start: 20160513
  19. PROBIOTIC [Concomitant]
     Active Substance: PROBIOTICS NOS
  20. XARELTO [Concomitant]
     Active Substance: RIVAROXABAN
  21. CYANOCOBALAMIN. [Concomitant]
     Active Substance: CYANOCOBALAMIN
  22. IBUPROFEN. [Concomitant]
     Active Substance: IBUPROFEN
  23. ZANTAC [Concomitant]
     Active Substance: RANITIDINE HYDROCHLORIDE
  24. LOTRIMIN [Concomitant]
     Active Substance: CLOTRIMAZOLE
  25. ORTHOVISC [Concomitant]
     Active Substance: HYALURONIC ACID
  26. BROMDAY [Concomitant]
     Active Substance: BROMFENAC SODIUM
  27. PREDNISONE. [Concomitant]
     Active Substance: PREDNISONE
  28. IMODIUM A-D [Concomitant]
     Active Substance: LOPERAMIDE HYDROCHLORIDE
  29. FERROUS SULFATE. [Concomitant]
     Active Substance: FERROUS SULFATE
  30. GABAPENTIN. [Concomitant]
     Active Substance: GABAPENTIN
  31. BESIVANCE [Concomitant]
     Active Substance: BESIFLOXACIN
  32. ALENDRONATE SODIUM. [Concomitant]
     Active Substance: ALENDRONATE SODIUM
  33. SYNTHROID [Concomitant]
     Active Substance: LEVOTHYROXINE SODIUM
  34. METAMUCIL [Concomitant]
     Active Substance: PLANTAGO SEED
  35. TRAMADOL HCL [Concomitant]
     Active Substance: TRAMADOL HYDROCHLORIDE
  36. BIOTIN [Concomitant]
     Active Substance: BIOTIN
  37. CLOTRIMAZOLE. [Concomitant]
     Active Substance: CLOTRIMAZOLE
  38. DEPO-MEDROL [Concomitant]
     Active Substance: METHYLPREDNISOLONE ACETATE
  39. ACIDOPHILUS, LACTOBACILLUS [Concomitant]
  40. FLUTICASONE PROPIONATE. [Concomitant]
     Active Substance: FLUTICASONE PROPIONATE
  41. CLINDAMYCIN HYDROCHLORIDE. [Concomitant]
     Active Substance: CLINDAMYCIN HYDROCHLORIDE
  42. LOSARTAN POTASSIUM. [Concomitant]
     Active Substance: LOSARTAN POTASSIUM
  43. XYREM [Suspect]
     Active Substance: SODIUM OXYBATE
     Dosage: 2.25 G, BID
     Route: 048
     Dates: start: 201202, end: 201202
  44. XYREM [Suspect]
     Active Substance: SODIUM OXYBATE
     Dosage: 3 G, BID
     Route: 048
     Dates: start: 201202, end: 201208

REACTIONS (2)
  - Diarrhoea [Unknown]
  - Thyroid disorder [Unknown]
